FAERS Safety Report 4597717-5 (Version None)
Quarter: 2005Q1

REPORT INFORMATION
  Report Type: 
  Country: None (occurrence: None)
  Receive Date: 20050125
  Receipt Date: 20040819
  Transmission Date: 20050727
  Serious: No
  Sender: FDA-Public Use
  Company Number: USA040875978

PATIENT
  Age: 67 Year
  Sex: Female
  Weight: 57 kg

DRUGS (9)
  1. FORTEO [Suspect]
     Indication: OSTEOPOROSIS
     Dosage: 20 UG/1 DAY
     Dates: start: 20040729
  2. VITAMIN E [Concomitant]
  3. FOLIC ACID [Concomitant]
  4. VITAMIN D [Concomitant]
  5. MULTI-VITAMIN [Concomitant]
  6. BENADRYL (DIPHENYDRAMINE HYDROCHLORIDE) [Concomitant]
  7. PREVACID [Concomitant]
  8. ALBUTEROL [Concomitant]
  9. MIACALCIN [Concomitant]

REACTIONS (4)
  - ABDOMINAL DISTENSION [None]
  - DYSGEUSIA [None]
  - FATIGUE [None]
  - NAUSEA [None]
